FAERS Safety Report 23015616 (Version 5)
Quarter: 2024Q2

REPORT INFORMATION
  Report Type: Report from Study
  Country: IE (occurrence: IE)
  Receive Date: 20231002
  Receipt Date: 20240429
  Transmission Date: 20240716
  Serious: Yes (Other)
  Sender: FDA-Public Use
  Company Number: IE-TAKEDA-2023TUS035267

PATIENT
  Age: 36 Year
  Sex: Female

DRUGS (14)
  1. HUMAN IMMUNOGLOBULIN G\HYALURONIDASE RECOMBINANT HUMAN [Suspect]
     Active Substance: HUMAN IMMUNOGLOBULIN G\HYALURONIDASE (HUMAN RECOMBINANT)
     Indication: Dermatomyositis
     Dosage: 35 GRAM
     Route: 065
     Dates: start: 20230403
  2. HUMAN IMMUNOGLOBULIN G\HYALURONIDASE RECOMBINANT HUMAN [Suspect]
     Active Substance: HUMAN IMMUNOGLOBULIN G\HYALURONIDASE (HUMAN RECOMBINANT)
     Dosage: 35 GRAM
     Route: 065
  3. HUMAN IMMUNOGLOBULIN G\HYALURONIDASE RECOMBINANT HUMAN [Suspect]
     Active Substance: HUMAN IMMUNOGLOBULIN G\HYALURONIDASE (HUMAN RECOMBINANT)
     Dosage: 140 GRAM
     Route: 058
  4. HUMAN IMMUNOGLOBULIN G\HYALURONIDASE RECOMBINANT HUMAN [Suspect]
     Active Substance: HUMAN IMMUNOGLOBULIN G\HYALURONIDASE (HUMAN RECOMBINANT)
     Dosage: 70 GRAM
     Route: 058
  5. CELLCEPT [Concomitant]
     Active Substance: MYCOPHENOLATE MOFETIL
     Dosage: 500 MILLIGRAM, BID
     Route: 050
  6. FEXOFENADINE [Concomitant]
     Active Substance: FEXOFENADINE HYDROCHLORIDE
     Dosage: 120 MILLIGRAM, TID
     Route: 050
  7. PLAQUINOL [Concomitant]
     Active Substance: HYDROXYCHLOROQUINE SULFATE
     Dosage: 200 MILLIGRAM, TID
     Route: 050
  8. TOPAMAX [Concomitant]
     Active Substance: TOPIRAMATE
     Dosage: 100 MILLIGRAM, BID
     Route: 050
  9. Adipine [Concomitant]
     Dosage: 30 MILLIGRAM, QD
     Route: 050
  10. DESOGESTREL [Concomitant]
     Active Substance: DESOGESTREL
     Dosage: 75 MILLIGRAM, QD
     Route: 050
  11. AJOVY [Concomitant]
     Active Substance: FREMANEZUMAB-VFRM
     Dosage: 225 MILLIGRAM, Q4WEEKS
     Route: 050
  12. DURAGESIC [Concomitant]
     Active Substance: FENTANYL
     Dosage: 50 MICROGRAM
     Route: 050
  13. OXYCODONE HYDROCHLORIDE [Concomitant]
     Active Substance: OXYCODONE HYDROCHLORIDE
     Dosage: 5 MILLIGRAM
     Route: 050
  14. KETAMINE [Concomitant]
     Active Substance: KETAMINE
     Dosage: 1 MILLIGRAM
     Route: 050

REACTIONS (22)
  - White blood cell count decreased [Not Recovered/Not Resolved]
  - Neutrophil count decreased [Not Recovered/Not Resolved]
  - Pain [Recovered/Resolved]
  - Generalised oedema [Recovered/Resolved]
  - Granuloma annulare [Not Recovered/Not Resolved]
  - Drug ineffective [Unknown]
  - Drug intolerance [Unknown]
  - Incision site pain [Not Recovered/Not Resolved]
  - Incision site swelling [Not Recovered/Not Resolved]
  - Infusion site mass [Not Recovered/Not Resolved]
  - Myalgia [Not Recovered/Not Resolved]
  - Rash [Recovered/Resolved]
  - Infusion site swelling [Not Recovered/Not Resolved]
  - Infusion site pain [Recovered/Resolved]
  - Infusion site discomfort [Recovered/Resolved]
  - Headache [Recovered/Resolved]
  - Nausea [Recovered/Resolved]
  - Pain in extremity [Unknown]
  - Malaise [Unknown]
  - Pruritus [Unknown]
  - Device infusion issue [Recovering/Resolving]
  - Off label use [Unknown]

NARRATIVE: CASE EVENT DATE: 20230403
